FAERS Safety Report 6482594-8 (Version None)
Quarter: 2009Q4

REPORT INFORMATION
  Report Type: 
  Country: None (occurrence: None)
  Receive Date: 20091209
  Receipt Date: 20091126
  Transmission Date: 20100525
  Serious: Yes (Hospitalization, Other)
  Sender: FDA-Public Use
  Company Number: US-RANBAXY-2009US-29583

PATIENT
  Age: 58 Year
  Sex: Male

DRUGS (3)
  1. VERAPAMIL [Suspect]
     Indication: HEART RATE IRREGULAR
     Dosage: 240 MG, 1 IN 1 D
     Route: 048
  2. DIGOXIN [Suspect]
     Indication: ATRIAL FIBRILLATION
     Route: 065
  3. WARFARIN SODIUM [Concomitant]
     Indication: ATRIAL FIBRILLATION
     Route: 065

REACTIONS (2)
  - CARDIOGENIC SHOCK [None]
  - DRUG INTERACTION [None]
